FAERS Safety Report 9486543 (Version 1)
Quarter: 2013Q3

REPORT INFORMATION
  Report Type: Spontaneous
  Country: US (occurrence: None)
  Receive Date: 20130827
  Receipt Date: 20130827
  Transmission Date: 20140515
  Serious: Yes (Disabling)
  Sender: FDA-Public Use
  Company Number: None

PATIENT
  Age: 23 Year
  Sex: Female
  Weight: 61.24 kg

DRUGS (1)
  1. CIPROFLOXACIN [Suspect]
     Indication: URINARY TRACT INFECTION
     Route: 048
     Dates: start: 20130517, end: 20130518

REACTIONS (10)
  - Arthropathy [None]
  - Tendon pain [None]
  - Headache [None]
  - Nausea [None]
  - Dry eye [None]
  - Dry mouth [None]
  - Myalgia [None]
  - Fatigue [None]
  - Depression [None]
  - Mobility decreased [None]
